FAERS Safety Report 21075448 (Version 2)
Quarter: 2022Q3

REPORT INFORMATION
  Report Type: Spontaneous
  Country: PL (occurrence: PL)
  Receive Date: 20220713
  Receipt Date: 20220713
  Transmission Date: 20221027
  Serious: Yes (Other)
  Sender: FDA-Public Use
  Company Number: PL-PFIZER INC-202200925663

PATIENT
  Age: 78 Year
  Sex: Female

DRUGS (12)
  1. AMLODIPINE BESYLATE [Interacting]
     Active Substance: AMLODIPINE BESYLATE
     Indication: Cardiac failure
     Dosage: 10 MG, 1X/DAY
  2. AMLODIPINE BESYLATE [Interacting]
     Active Substance: AMLODIPINE BESYLATE
     Indication: Hypertension
  3. CLARITHROMYCIN [Interacting]
     Active Substance: CLARITHROMYCIN
     Indication: Bronchitis
     Dosage: 500 MG, 2X/DAY
  4. METOPROLOL [Concomitant]
     Active Substance: METOPROLOL
     Indication: Cardiac failure
     Dosage: 12.5 MG, 1X/DAY
  5. METOPROLOL [Concomitant]
     Active Substance: METOPROLOL
     Indication: Hypertension
  6. ZOFENOPRIL [Concomitant]
     Active Substance: ZOFENOPRIL
     Indication: Cardiac failure
     Dosage: 7.5 MG, 1X/DAY
  7. ZOFENOPRIL [Concomitant]
     Active Substance: ZOFENOPRIL
     Indication: Hypertension
  8. TORSEMIDE [Concomitant]
     Active Substance: TORSEMIDE
     Indication: Cardiac failure
     Dosage: 5 MG, 1X/DAY
  9. TORSEMIDE [Concomitant]
     Active Substance: TORSEMIDE
     Indication: Hypertension
  10. ERDOSTEINE [Concomitant]
     Active Substance: ERDOSTEINE
     Indication: Bronchitis
     Dosage: 300 MG, 2X/DAY
  11. ACETAMINOPHEN [Concomitant]
     Active Substance: ACETAMINOPHEN
     Indication: Bronchitis
     Dosage: UNK
  12. ACETAMINOPHEN [Concomitant]
     Active Substance: ACETAMINOPHEN
     Indication: Pyrexia

REACTIONS (2)
  - Hyponatraemia [Unknown]
  - Drug interaction [Unknown]
